FAERS Safety Report 15597077 (Version 1)
Quarter: 2018Q4

REPORT INFORMATION
  Report Type: Spontaneous
  Country: FR (occurrence: FR)
  Receive Date: 20181108
  Receipt Date: 20181108
  Transmission Date: 20190205
  Serious: Yes (Death)
  Sender: FDA-Public Use
  Company Number: FR-NAPPMUNDI-GBR-2018-0061226

PATIENT
  Age: 64 Year
  Sex: Female
  Weight: 71 kg

DRUGS (9)
  1. ACUPAN [Concomitant]
     Active Substance: NEFOPAM HYDROCHLORIDE
     Indication: PAIN
     Dosage: UNK
     Route: 048
     Dates: start: 20180205
  2. ABSTRAL [Concomitant]
     Active Substance: FENTANYL CITRATE
     Indication: PAIN
     Route: 002
     Dates: start: 20180215, end: 20180218
  3. AXEPIM [Concomitant]
     Active Substance: CEFEPIME HYDROCHLORIDE
     Indication: PNEUMOCYSTIS JIROVECII PNEUMONIA
     Route: 042
     Dates: start: 20180219
  4. BACTRIM [Concomitant]
     Active Substance: SULFAMETHOXAZOLE\TRIMETHOPRIM
     Indication: PNEUMOCYSTIS JIROVECII PNEUMONIA
     Route: 042
     Dates: start: 20180219
  5. LAROXYL [Concomitant]
     Active Substance: AMITRIPTYLINE HYDROCHLORIDE
     Indication: PRODUCT USED FOR UNKNOWN INDICATION
     Dosage: 10 A 15 MG/J
     Route: 048
  6. OXYCONTIN [Concomitant]
     Active Substance: OXYCODONE HYDROCHLORIDE
     Indication: PRODUCT USED FOR UNKNOWN INDICATION
     Dosage: UNK MG, UNK
     Route: 048
     Dates: start: 20180202, end: 20180309
  7. LYRICA [Concomitant]
     Active Substance: PREGABALIN
     Indication: PAIN
     Route: 048
     Dates: start: 20180202
  8. OXYNORMORO [Suspect]
     Active Substance: OXYCODONE HYDROCHLORIDE
     Indication: ARTHRALGIA
     Route: 048
     Dates: start: 20180202, end: 20180220
  9. PRIMPERAN [Concomitant]
     Active Substance: METOCLOPRAMIDE HYDROCHLORIDE
     Indication: NAUSEA
     Route: 048
     Dates: start: 20180202

REACTIONS (1)
  - Acute respiratory distress syndrome [Fatal]

NARRATIVE: CASE EVENT DATE: 20180220
